FAERS Safety Report 7180020-7 (Version None)
Quarter: 2010Q4

REPORT INFORMATION
  Report Type: 
  Country: None (occurrence: None)
  Receive Date: 20101221
  Receipt Date: 20101217
  Transmission Date: 20110411
  Serious: Yes (Hospitalization, Other)
  Sender: FDA-Public Use
  Company Number: JP-PFIZER INC-2010158695

PATIENT
  Age: 49 Year
  Sex: Female

DRUGS (2)
  1. AZULFIDINE [Suspect]
  2. RHEUMATREX [Concomitant]

REACTIONS (1)
  - LUPUS NEPHRITIS [None]
